FAERS Safety Report 13256628 (Version 1)
Quarter: 2017Q1

REPORT INFORMATION
  Report Type: Spontaneous
  Country: US (occurrence: US)
  Receive Date: 20170220
  Receipt Date: 20170220
  Transmission Date: 20170428
  Serious: Yes (Life-Threatening)
  Sender: FDA-Public Use
  Company Number: None

PATIENT
  Age: 26 Day
  Sex: Male
  Weight: 2.1 kg

DRUGS (1)
  1. LEVOFLOXACIN ORAL SUSP [Suspect]
     Active Substance: LEVOFLOXACIN
     Indication: ANTIBIOTIC PROPHYLAXIS
     Dosage: 22.5 MG DAILY PO OR NG
     Route: 048
     Dates: start: 20170204, end: 20170220

REACTIONS (1)
  - Eosinophil count increased [None]

NARRATIVE: CASE EVENT DATE: 20170216
